FAERS Safety Report 21020897 (Version 1)
Quarter: 2022Q2

REPORT INFORMATION
  Report Type: Report from Study
  Country: GB (occurrence: GB)
  Receive Date: 20220629
  Receipt Date: 20220629
  Transmission Date: 20220721
  Serious: Yes (Other)
  Sender: FDA-Public Use
  Company Number: GB-SUN PHARMACEUTICAL INDUSTRIES LTD-2022R1-342333

PATIENT
  Age: 69 Year

DRUGS (5)
  1. FERROUS SULFATE [Suspect]
     Active Substance: FERROUS SULFATE
     Indication: Antipsychotic therapy
     Dosage: UNK
     Route: 065
  2. VENLAFAXINE [Suspect]
     Active Substance: VENLAFAXINE HYDROCHLORIDE
     Indication: Antipsychotic therapy
     Dosage: 75 MILLIGRAM, DAILY
     Route: 065
  3. AMISULPRIDE [Suspect]
     Active Substance: AMISULPRIDE
     Indication: Antipsychotic therapy
     Dosage: 100 MILLIGRAM, DAILY
     Route: 065
  4. MIRTAZAPINE [Suspect]
     Active Substance: MIRTAZAPINE
     Indication: Antipsychotic therapy
     Dosage: 30 MILLIGRAM, DAILY
     Route: 065
  5. NIFEDIPINE [Suspect]
     Active Substance: NIFEDIPINE
     Indication: Antipsychotic therapy
     Dosage: 40 MILLIGRAM, DAILY
     Route: 065

REACTIONS (1)
  - Parkinson^s disease [Unknown]
